FAERS Safety Report 9842316 (Version 3)
Quarter: 2014Q1

REPORT INFORMATION
  Report Type: Spontaneous
  Country: JP (occurrence: JP)
  Receive Date: 20140124
  Receipt Date: 20140212
  Transmission Date: 20141002
  Serious: Yes (Death)
  Sender: FDA-Public Use
  Company Number: PHHY2014JP008848

PATIENT
  Age: 80 Year
  Sex: Male

DRUGS (5)
  1. EXELON PATCH [Suspect]
     Indication: DEMENTIA ALZHEIMER^S TYPE
     Dosage: UNK UKN, UNK
     Route: 062
  2. SELBEX [Concomitant]
     Dosage: UNK UKN, UNK
     Route: 048
  3. CABAGIN-U [Concomitant]
     Dosage: UNK UKN, UNK
     Route: 048
  4. COBALTAMIN S [Concomitant]
     Dosage: UNK UKN, UNK
     Route: 048
  5. ADALAT [Concomitant]
     Dosage: UNK UKN, UNK
     Route: 048

REACTIONS (1)
  - Cerebral haemorrhage [Fatal]
